FAERS Safety Report 9721273 (Version 1)
Quarter: 2013Q4

REPORT INFORMATION
  Report Type: Spontaneous
  Country: US (occurrence: US)
  Receive Date: 20131129
  Receipt Date: 20131129
  Transmission Date: 20140711
  Serious: No
  Sender: FDA-Public Use
  Company Number: US-PFIZER INC-2013339143

PATIENT
  Age: 84 Year
  Sex: Female
  Weight: 42.18 kg

DRUGS (3)
  1. PREMARIN [Suspect]
     Dosage: UNK, 2X/WEEK
     Route: 067
  2. RECLAST [Concomitant]
     Indication: OSTEOPOROSIS
     Dosage: UNK, AS NEEDED
  3. VESICARE [Concomitant]
     Indication: MICTURITION DISORDER
     Dosage: 5 MG, 1X/DAY

REACTIONS (1)
  - Vulvovaginal burning sensation [Not Recovered/Not Resolved]
